FAERS Safety Report 6075881-9 (Version None)
Quarter: 2009Q1

REPORT INFORMATION
  Report Type: 
  Country: None (occurrence: None)
  Receive Date: 20090212
  Receipt Date: 20090129
  Transmission Date: 20090719
  Serious: Yes (Death, Other)
  Sender: FDA-Public Use
  Company Number: NL-GENENTECH-276954

PATIENT
  Age: 53 Year
  Sex: Male

DRUGS (3)
  1. ACTIVASE [Suspect]
     Indication: PORTAL VEIN THROMBOSIS
     Dosage: 10 MG, UNK
     Route: 040
  2. ACTIVASE [Suspect]
     Dosage: 4 MG/HR, CONTINUOUS
     Route: 042
  3. HEPARIN [Suspect]
     Indication: PORTAL VEIN THROMBOSIS

REACTIONS (3)
  - INTRA-ABDOMINAL HAEMORRHAGE [None]
  - MULTI-ORGAN FAILURE [None]
  - PERITONITIS BACTERIAL [None]
